FAERS Safety Report 5966296-X (Version None)
Quarter: 2008Q4

REPORT INFORMATION
  Report Type: 
  Country: None (occurrence: None)
  Receive Date: 20081119
  Receipt Date: 20080914
  Transmission Date: 20090506
  Serious: No
  Sender: FDA-Public Use
  Company Number: WAES 0809USA02025

PATIENT
  Sex: Male

DRUGS (1)
  1. JANUVIA [Suspect]

REACTIONS (1)
  - HEADACHE [None]
